FAERS Safety Report 6464367-5 (Version None)
Quarter: 2009Q4

REPORT INFORMATION
  Report Type: 
  Country: None (occurrence: None)
  Receive Date: 20091130
  Receipt Date: 20091130
  Transmission Date: 20100525
  Serious: Yes (Other)
  Sender: FDA-Public Use
  Company Number: None

PATIENT
  Age: 51 Year
  Sex: Female
  Weight: 62.5964 kg

DRUGS (2)
  1. OXCARBAZEPINE [Suspect]
     Indication: COMPLEX PARTIAL SEIZURES
     Dosage: 300MG EVERY 12 HRS PO
     Route: 048
  2. LEVETIRACETAM [Suspect]
     Dosage: 500MG EVERY 12 HRS PO
     Route: 048

REACTIONS (12)
  - APHASIA [None]
  - AURA [None]
  - COMPLEX PARTIAL SEIZURES [None]
  - EMOTIONAL DISORDER [None]
  - GAIT DISTURBANCE [None]
  - IMPAIRED DRIVING ABILITY [None]
  - IMPAIRED WORK ABILITY [None]
  - MENTAL IMPAIRMENT [None]
  - NAUSEA [None]
  - PRODUCT SUBSTITUTION ISSUE [None]
  - URINARY TRACT INFECTION [None]
  - VISION BLURRED [None]
